FAERS Safety Report 6811076-6 (Version None)
Quarter: 2010Q2

REPORT INFORMATION
  Report Type: 
  Country: None (occurrence: None)
  Receive Date: 20100630
  Receipt Date: 20090609
  Transmission Date: 20101027
  Serious: No
  Sender: FDA-Public Use
  Company Number: US-PFIZER INC-2009158888

PATIENT
  Sex: Female
  Weight: 56.699 kg

DRUGS (1)
  1. NICOTROL [Suspect]
     Indication: SMOKING CESSATION THERAPY
     Dosage: FREQUENCY: PRN, EVERY DAY;
     Route: 048
     Dates: start: 20021130, end: 20061215

REACTIONS (1)
  - THROAT IRRITATION [None]
